FAERS Safety Report 5258872-7 (Version None)
Quarter: 2007Q1

REPORT INFORMATION
  Report Type: 
  Country: None (occurrence: None)
  Receive Date: 20070306
  Receipt Date: 20070306
  Transmission Date: 20070707
  Serious: No
  Sender: FDA-Public Use
  Company Number: None

PATIENT
  Sex: Female
  Weight: 99.7913 kg

DRUGS (2)
  1. CYMBALTA [Suspect]
     Indication: MYALGIA
     Dosage: 30 MG DAILY PO
     Route: 048
     Dates: start: 20070303, end: 20070303
  2. CYMBALTA [Suspect]
     Indication: STRESS
     Dosage: 30 MG DAILY PO
     Route: 048
     Dates: start: 20070303, end: 20070303

REACTIONS (20)
  - ABNORMAL BEHAVIOUR [None]
  - ANXIETY [None]
  - CONTUSION [None]
  - DISORIENTATION [None]
  - DISTURBANCE IN ATTENTION [None]
  - FEELING ABNORMAL [None]
  - HYPERHIDROSIS [None]
  - HYPOAESTHESIA [None]
  - INSOMNIA [None]
  - IRRITABLE BOWEL SYNDROME [None]
  - JOINT STIFFNESS [None]
  - MENTAL DISORDER [None]
  - MUSCLE TIGHTNESS [None]
  - MYALGIA [None]
  - NAUSEA [None]
  - PANIC REACTION [None]
  - THINKING ABNORMAL [None]
  - TREMOR [None]
  - URINARY INCONTINENCE [None]
  - VOMITING [None]
